FAERS Safety Report 4297422-9 (Version None)
Quarter: 2004Q1

REPORT INFORMATION
  Report Type: 
  Country: None (occurrence: None)
  Receive Date: 20040218
  Receipt Date: 20040218
  Transmission Date: 20041129
  Serious: No
  Sender: FDA-Public Use
  Company Number: None

PATIENT

DRUGS (1)
  1. VANCOMYCIN [Suspect]

REACTIONS (3)
  - FEELING HOT [None]
  - PRURITUS [None]
  - RASH ERYTHEMATOUS [None]
